FAERS Safety Report 26200707 (Version 1)
Quarter: 2025Q4

REPORT INFORMATION
  Report Type: Spontaneous
  Country: CA (occurrence: CA)
  Receive Date: 20251226
  Receipt Date: 20251226
  Transmission Date: 20260118
  Serious: Yes (Other)
  Sender: AUROBINDO
  Company Number: CA-AUROBINDO-AUR-APL-2025-066540

PATIENT
  Age: 61 Year
  Sex: Female

DRUGS (4)
  1. RISEDRONATE SODIUM [Suspect]
     Active Substance: RISEDRONATE SODIUM
     Indication: Product used for unknown indication
     Dosage: UNK
     Route: 065
  2. STELARA [Suspect]
     Active Substance: USTEKINUMAB
     Indication: Crohn^s disease
     Dosage: 90 MILLIGRAM, EVERY WEEK
  3. STELARA [Suspect]
     Active Substance: USTEKINUMAB
     Dosage: 320 MILLIGRAM
  4. DEXILANT [Suspect]
     Active Substance: DEXLANSOPRAZOLE
     Indication: Gastrointestinal disorder
     Dosage: UNK
     Route: 065

REACTIONS (4)
  - Pneumonia [Recovering/Resolving]
  - Gastrointestinal inflammation [Recovering/Resolving]
  - Intestinal obstruction [Recovering/Resolving]
  - Off label use [Recovering/Resolving]
